FAERS Safety Report 6755282-8 (Version None)
Quarter: 2010Q2

REPORT INFORMATION
  Report Type: 
  Country: None (occurrence: None)
  Receive Date: 20100602
  Receipt Date: 20100517
  Transmission Date: 20101027
  Serious: Yes (Death)
  Sender: FDA-Public Use
  Company Number: LEO-2010-00469

PATIENT
  Age: 65 Year
  Sex: Male

DRUGS (7)
  1. INNOHEP [Suspect]
     Dosage: SUBCUTANEOUS
  2. REVLIMID [Suspect]
     Dosage: 12.5 MG (25 MG, 1 IN 2 D), ORAL
  3. GLYBURIDE [Concomitant]
  4. METFORMIN HCL [Concomitant]
  5. PREDNISONE [Concomitant]
  6. RABEPRAZOLE SODIUM [Concomitant]
  7. SEPTRA [Concomitant]

REACTIONS (8)
  - ABDOMINAL DISTENSION [None]
  - CARDIAC ARREST [None]
  - DEHYDRATION [None]
  - DIARRHOEA [None]
  - GASTROINTESTINAL OEDEMA [None]
  - HYPOTENSION [None]
  - INTESTINAL DILATATION [None]
  - RENAL FAILURE [None]
